FAERS Safety Report 25143303 (Version 1)
Quarter: 2025Q2

REPORT INFORMATION
  Report Type: Spontaneous
  Country: US (occurrence: US)
  Receive Date: 20250401
  Receipt Date: 20250401
  Transmission Date: 20250717
  Serious: No
  Sender: ROCHE
  Company Number: US-ROCHE-10000238340

PATIENT
  Sex: Male

DRUGS (4)
  1. ACTEMRA ACTPEN [Suspect]
     Active Substance: TOCILIZUMAB
     Indication: Rheumatoid arthritis
     Dosage: FORM STRENGTH: 162MG/0.9ML
     Route: 058
  2. NORCO [Suspect]
     Active Substance: ACETAMINOPHEN\HYDROCODONE BITARTRATE
     Indication: Product used for unknown indication
     Route: 065
  3. PRAVASTATIN TAB 40MG [Concomitant]
  4. VITAMIN D3 CAP 50MCG [Concomitant]

REACTIONS (6)
  - Pneumonia legionella [Unknown]
  - Immune system disorder [Unknown]
  - Neck pain [Unknown]
  - Intervertebral disc degeneration [Unknown]
  - Pain [Unknown]
  - Lung disorder [Unknown]
